FAERS Safety Report 9548073 (Version 1)
Quarter: 2013Q3

REPORT INFORMATION
  Report Type: Spontaneous
  Country: US (occurrence: US)
  Receive Date: 20130924
  Receipt Date: 20130924
  Transmission Date: 20140515
  Serious: Yes (Other)
  Sender: FDA-Public Use
  Company Number: US-NAPPMUNDI-USA-2011-0073119

PATIENT
  Age: 57 Year
  Sex: Male

DRUGS (3)
  1. MORPHINE SULFATE (SIMILAR TO NDA 19-516) [Suspect]
     Indication: SCOLIOSIS
  2. OXYCONTIN (NDA 22-272) [Suspect]
     Indication: SCOLIOSIS
  3. XANAX [Suspect]
     Indication: SCOLIOSIS

REACTIONS (2)
  - Drug dependence [Recovering/Resolving]
  - Intentional drug misuse [Recovering/Resolving]
